FAERS Safety Report 5745703-1 (Version None)
Quarter: 2008Q2

REPORT INFORMATION
  Report Type: 
  Country: None (occurrence: None)
  Receive Date: 20080521
  Receipt Date: 20080513
  Transmission Date: 20081010
  Serious: Yes (Other)
  Sender: FDA-Public Use
  Company Number: CI-BOEHRINGER INGELHEIM GMBH, GERMANY-2008-DE-02808GD

PATIENT
  Sex: Female

DRUGS (10)
  1. NEVIRAPINE [Suspect]
     Indication: HUMAN IMMUNODEFICIENCY VIRUS TRANSMISSION
  2. NEVIRAPINE [Suspect]
     Indication: PROPHYLAXIS
  3. ZIDOVUDINE [Suspect]
     Indication: HUMAN IMMUNODEFICIENCY VIRUS TRANSMISSION
     Route: 048
  4. ZIDOVUDINE [Suspect]
     Indication: PROPHYLAXIS
  5. LAMIVUDINE [Suspect]
     Indication: HUMAN IMMUNODEFICIENCY VIRUS TRANSMISSION
  6. LAMIVUDINE [Suspect]
     Indication: PROPHYLAXIS
  7. VITAMIN CAP [Concomitant]
  8. IRON [Concomitant]
  9. FOLATE [Concomitant]
  10. MALARIA PROPHYLACTIC AGENT [Concomitant]
     Indication: MALARIA PROPHYLAXIS

REACTIONS (2)
  - MATERNAL DRUGS AFFECTING FOETUS [None]
  - STILLBIRTH [None]
